FAERS Safety Report 6271442-7 (Version None)
Quarter: 2009Q3

REPORT INFORMATION
  Report Type: 
  Country: None (occurrence: None)
  Receive Date: 20090717
  Receipt Date: 20090708
  Transmission Date: 20100115
  Serious: Yes (Hospitalization)
  Sender: FDA-Public Use
  Company Number: JP-JNJFOC-20090703114

PATIENT
  Sex: Female

DRUGS (2)
  1. REMICADE [Suspect]
     Indication: RHEUMATOID ARTHRITIS
     Dosage: 6 INFUSIONS ON UNSPECIFIED DATES
     Route: 042
  2. ISONIAZID [Concomitant]
     Indication: PROPHYLAXIS

REACTIONS (1)
  - TUBERCULOSIS [None]
